FAERS Safety Report 6206288-9 (Version None)
Quarter: 2009Q2

REPORT INFORMATION
  Report Type: 
  Country: None (occurrence: None)
  Receive Date: 20090528
  Receipt Date: 20090520
  Transmission Date: 20091009
  Serious: No
  Sender: FDA-Public Use
  Company Number: US-ROCHE-633150

PATIENT
  Sex: Female

DRUGS (2)
  1. ISOTRETINOIN [Suspect]
     Indication: DRUG USE FOR UNKNOWN INDICATION
     Dosage: THE PATIENT WAS DISPENSED ACCUTANE 20 MG CAPSULE ON 30 MARCH 2009
     Route: 065
     Dates: start: 20090330, end: 20090430
  2. BIRTH CONTROL PILLS [Concomitant]
     Dosage: FORM: PILLS

REACTIONS (1)
  - PREGNANCY TEST FALSE POSITIVE [None]
